FAERS Safety Report 9619829 (Version 3)
Quarter: 2013Q4

REPORT INFORMATION
  Report Type: Spontaneous
  Country: IE (occurrence: IE)
  Receive Date: 20131014
  Receipt Date: 20131028
  Transmission Date: 20140711
  Serious: Yes (Death, Other)
  Sender: FDA-Public Use
  Company Number: IE-TAKEDA-2013TUS000864

PATIENT
  Age: 36 Year
  Sex: Male

DRUGS (2)
  1. ADENURIC [Suspect]
     Indication: GOUT
     Dosage: 80 MG, QD
     Route: 065
     Dates: start: 20130904
  2. COLGOUT [Concomitant]
     Dosage: 500 ?G, QD
     Dates: start: 20130812

REACTIONS (2)
  - Myocardial infarction [Fatal]
  - Abdominal pain lower [Fatal]
